FAERS Safety Report 5363114-8 (Version None)
Quarter: 2007Q2

REPORT INFORMATION
  Report Type: 
  Country: None (occurrence: None)
  Receive Date: 20070615
  Receipt Date: 20070601
  Transmission Date: 20071010
  Serious: Yes (Death, Hospitalization)
  Sender: FDA-Public Use
  Company Number: 100#03#2007-02054

PATIENT
  Sex: Male

DRUGS (9)
  1. CARBOPLATIN [Suspect]
     Indication: NEOPLASM MALIGNANT
     Dosage: UNKNOWN (1) INTRAVENOUS (NOT OTHERWISE SPECIFIED)
     Route: 042
     Dates: start: 20041215, end: 20041215
  2. METHOTREXATE [Suspect]
     Indication: NEOPLASM MALIGNANT
     Dosage: UNKNOWN (1) INTRAVENOUS (NOT OTHERWISE SPECIFIED)
     Route: 042
     Dates: start: 20041215, end: 20041230
  3. VINBLASTINE (VINBLASTINE) (VINBLASTINE) [Suspect]
     Indication: NEOPLASM MALIGNANT
     Dosage: UNKNOWN (1) INTRAVENOUS (NOT OTHERWISE SPECIFIED)
     Route: 042
     Dates: start: 20041215, end: 20041230
  4. BENDROFLUAZIDE (BENDROFLUMETHIAZIDE) (BENDROFLUAZIDE) [Concomitant]
  5. CODEINE PHOSPHATE (CODEINE PHOSPHATE) (CODEINE) [Concomitant]
  6. MOVICOL (NULYTELY) (MACROGOL 3350, POLYETHYLENE GLYCOL 3350, POTASSIUM [Concomitant]
  7. NIFEDIPINE [Concomitant]
  8. PARACETAMOL (PARACETAMOL) (PARACETAMOL) [Concomitant]
  9. RAMIPRIL (RAMIPRIL) (RAMIPRIL) [Concomitant]

REACTIONS (10)
  - BACTERIA URINE IDENTIFIED [None]
  - CATHETER RELATED COMPLICATION [None]
  - CHILLS [None]
  - DYSPNOEA [None]
  - FEELING COLD [None]
  - FEMUR FRACTURE [None]
  - MUSCULOSKELETAL CHEST PAIN [None]
  - NEUTROPENIC SEPSIS [None]
  - PENILE PAIN [None]
  - STAPHYLOCOCCAL INFECTION [None]
